FAERS Safety Report 12096937 (Version 1)
Quarter: 2016Q1

REPORT INFORMATION
  Report Type: Spontaneous
  Country: CN (occurrence: CN)
  Receive Date: 20160221
  Receipt Date: 20160221
  Transmission Date: 20160526
  Serious: Yes (Death)
  Sender: FDA-Public Use
  Company Number: CN-ROXANE LABORATORIES, INC.-2016-RO-00303RO

PATIENT
  Age: 43 Year
  Sex: Female

DRUGS (6)
  1. ASPIRIN. [Suspect]
     Active Substance: ASPIRIN
     Indication: ANTIPHOSPHOLIPID ANTIBODIES
  2. CLOPIDOGREL [Suspect]
     Active Substance: CLOPIDOGREL BISULFATE
     Indication: ANTIPHOSPHOLIPID ANTIBODIES
  3. TRIPTORELIN [Suspect]
     Active Substance: TRIPTORELIN
     Indication: ANTIPHOSPHOLIPID ANTIBODIES
  4. ASPIRIN. [Suspect]
     Active Substance: ASPIRIN
     Indication: MOYAMOYA DISEASE
     Dosage: 100 MG
     Route: 065
  5. TRIPTORELIN [Suspect]
     Active Substance: TRIPTORELIN
     Indication: MOYAMOYA DISEASE
     Route: 065
  6. CLOPIDOGREL [Suspect]
     Active Substance: CLOPIDOGREL BISULFATE
     Indication: MOYAMOYA DISEASE
     Dosage: 75 MG
     Route: 065

REACTIONS (1)
  - Intraventricular haemorrhage [Fatal]
